FAERS Safety Report 10040349 (Version 1)
Quarter: 2014Q1

REPORT INFORMATION
  Report Type: Spontaneous
  Country: US (occurrence: US)
  Receive Date: 20140327
  Receipt Date: 20140327
  Transmission Date: 20141002
  Serious: No
  Sender: FDA-Public Use
  Company Number: US-BIOGENIDEC-2014BI027313

PATIENT
  Age: 38 Year
  Sex: Female

DRUGS (1)
  1. AVONEX [Suspect]
     Indication: RELAPSING-REMITTING MULTIPLE SCLEROSIS
     Route: 030
     Dates: start: 20121130, end: 20140212

REACTIONS (4)
  - Injection site haemorrhage [Recovered/Resolved]
  - Vascular injury [Unknown]
  - Depression [Recovered/Resolved]
  - Pain [Recovered/Resolved]
